FAERS Safety Report 5257626-5 (Version None)
Quarter: 2007Q1

REPORT INFORMATION
  Report Type: 
  Country: None (occurrence: None)
  Receive Date: 20070307
  Receipt Date: 20070109
  Transmission Date: 20070707
  Serious: No
  Sender: FDA-Public Use
  Company Number: US-GLAXOSMITHKLINE-A0634934A

PATIENT
  Sex: Female

DRUGS (5)
  1. REQUIP [Suspect]
     Indication: RESTLESS LEGS SYNDROME
     Dosage: .5MG PER DAY
     Route: 048
     Dates: start: 20061201
  2. GENERIC NASAL SPRAY [Suspect]
     Indication: MULTIPLE ALLERGIES
     Route: 045
  3. EFFEXOR XR [Concomitant]
  4. ESTRADIOL [Concomitant]
  5. NASAL SPRAY [Concomitant]

REACTIONS (3)
  - DRUG ADMINISTRATION ERROR [None]
  - EXPIRED DRUG ADMINISTERED [None]
  - INSOMNIA [None]
